FAERS Safety Report 17892171 (Version 1)
Quarter: 2020Q2

REPORT INFORMATION
  Report Type: Spontaneous
  Country: ES (occurrence: ES)
  Receive Date: 20200612
  Receipt Date: 20200612
  Transmission Date: 20200714
  Serious: Yes (Death, Hospitalization)
  Sender: FDA-Public Use
  Company Number: ES-ELI_LILLY_AND_COMPANY-ES202006004142

PATIENT
  Age: 28 Year
  Sex: Male

DRUGS (5)
  1. SEROQUEL [Interacting]
     Active Substance: QUETIAPINE FUMARATE
     Indication: AUTISM SPECTRUM DISORDER
     Dosage: 500 MG, DAILY
     Route: 048
     Dates: start: 20110701, end: 20200515
  2. HALOPERIDOL. [Interacting]
     Active Substance: HALOPERIDOL
     Indication: PRODUCT USED FOR UNKNOWN INDICATION
     Dosage: 5 MG, SINGLE
     Route: 030
     Dates: start: 20200515, end: 20200515
  3. OLANZAPINE. [Suspect]
     Active Substance: OLANZAPINE
     Indication: AUTISM SPECTRUM DISORDER
     Dosage: 10 MG, DAILY
     Route: 048
     Dates: start: 20200513, end: 20200515
  4. CLOPIXOL (DECANOATE) [Interacting]
     Active Substance: ZUCLOPENTHIXOL DECANOATE
     Indication: AUTISM SPECTRUM DISORDER
     Dosage: UNK UNK, UNKNOWN
     Route: 048
     Dates: start: 20100824, end: 20200515
  5. PAROXETINA ACTAVIS [Interacting]
     Active Substance: PAROXETINE HYDROCHLORIDE
     Indication: PRODUCT USED FOR UNKNOWN INDICATION
     Dosage: 20 MG, BID
     Route: 048
     Dates: start: 20110701, end: 20200515

REACTIONS (2)
  - Drug interaction [Unknown]
  - Cardio-respiratory arrest [Fatal]

NARRATIVE: CASE EVENT DATE: 20200515
